FAERS Safety Report 16876526 (Version 2)
Quarter: 2020Q2

REPORT INFORMATION
  Report Type: Spontaneous
  Country: US (occurrence: US)
  Receive Date: 20191002
  Receipt Date: 20200527
  Transmission Date: 20200713
  Serious: Yes (Hospitalization, Other)
  Sender: FDA-Public Use
  Company Number: US-ASTRAZENECA-2019SF36615

PATIENT
  Age: 14832 Day
  Sex: Female
  Weight: 137.4 kg

DRUGS (38)
  1. FARXIGA [Suspect]
     Active Substance: DAPAGLIFLOZIN PROPANEDIOL
     Indication: BLOOD PRESSURE DECREASED
     Route: 048
     Dates: start: 201708, end: 201801
  2. FARXIGA [Suspect]
     Active Substance: DAPAGLIFLOZIN PROPANEDIOL
     Indication: WEIGHT DECREASED
     Route: 048
     Dates: start: 20160224
  3. FARXIGA [Suspect]
     Active Substance: DAPAGLIFLOZIN PROPANEDIOL
     Indication: BLOOD PRESSURE DECREASED
     Route: 048
     Dates: start: 20160224
  4. CITALOPRAM [Concomitant]
     Active Substance: CITALOPRAM HYDROBROMIDE
  5. AMOXICILLIN. [Concomitant]
     Active Substance: AMOXICILLIN
  6. PROMETHAZINE [Concomitant]
     Active Substance: PROMETHAZINE HYDROCHLORIDE
  7. LANTUS [Concomitant]
     Active Substance: INSULIN GLARGINE
  8. SUDAFED [Concomitant]
     Active Substance: PSEUDOEPHEDRINE HYDROCHLORIDE
  9. FARXIGA [Suspect]
     Active Substance: DAPAGLIFLOZIN PROPANEDIOL
     Indication: TYPE 2 DIABETES MELLITUS
     Route: 048
     Dates: start: 20160224
  10. FARXIGA [Suspect]
     Active Substance: DAPAGLIFLOZIN PROPANEDIOL
     Indication: WEIGHT DECREASED
     Route: 048
     Dates: start: 20171204
  11. INSULIN [Concomitant]
     Active Substance: INSULIN NOS
  12. BYDUREON [Concomitant]
     Active Substance: EXENATIDE
  13. TRAMADOL. [Concomitant]
     Active Substance: TRAMADOL
  14. CITALOPRAM [Concomitant]
     Active Substance: CITALOPRAM HYDROBROMIDE
  15. GABAPENTIN. [Concomitant]
     Active Substance: GABAPENTIN
  16. JARDIANCE [Concomitant]
     Active Substance: EMPAGLIFLOZIN
  17. HUMALOG [Concomitant]
     Active Substance: INSULIN LISPRO
  18. DICLOFENAC [Concomitant]
     Active Substance: DICLOFENAC
  19. DICLOFENAC SODIUM. [Concomitant]
     Active Substance: DICLOFENAC SODIUM
  20. FAMOTIDINE. [Concomitant]
     Active Substance: FAMOTIDINE
  21. HYDROCOD [Concomitant]
  22. METFORMIN [Concomitant]
     Active Substance: METFORMIN HYDROCHLORIDE
  23. SUMATRIPTAN. [Concomitant]
     Active Substance: SUMATRIPTAN
  24. FARXIGA [Suspect]
     Active Substance: DAPAGLIFLOZIN PROPANEDIOL
     Indication: WEIGHT DECREASED
     Route: 048
     Dates: start: 201708, end: 201801
  25. BACLOFEN. [Concomitant]
     Active Substance: BACLOFEN
  26. GABAPENTIN. [Concomitant]
     Active Substance: GABAPENTIN
  27. FARXIGA [Suspect]
     Active Substance: DAPAGLIFLOZIN PROPANEDIOL
     Indication: TYPE 2 DIABETES MELLITUS
     Route: 048
     Dates: start: 201708, end: 201801
  28. METFORMIN [Concomitant]
     Active Substance: METFORMIN HYDROCHLORIDE
  29. METOCLOPRAMIDE. [Concomitant]
     Active Substance: METOCLOPRAMIDE
  30. RELION [Concomitant]
  31. DOXYCYCLINE. [Concomitant]
     Active Substance: DOXYCYCLINE
  32. DECONGESTANT [Concomitant]
     Active Substance: UNSPECIFIED INGREDIENT
  33. FARXIGA [Suspect]
     Active Substance: DAPAGLIFLOZIN PROPANEDIOL
     Indication: TYPE 2 DIABETES MELLITUS
     Route: 048
     Dates: start: 20171204
  34. FARXIGA [Suspect]
     Active Substance: DAPAGLIFLOZIN PROPANEDIOL
     Indication: BLOOD PRESSURE DECREASED
     Route: 048
     Dates: start: 20171204
  35. LISINOPRIL. [Concomitant]
     Active Substance: LISINOPRIL
  36. TOUJEO [Concomitant]
     Active Substance: INSULIN GLARGINE
  37. LOVASTATIN. [Concomitant]
     Active Substance: LOVASTATIN
  38. GLIMEPIRIDE. [Concomitant]
     Active Substance: GLIMEPIRIDE

REACTIONS (3)
  - Tooth abscess [Unknown]
  - Necrosis [Unknown]
  - Perirectal abscess [Unknown]

NARRATIVE: CASE EVENT DATE: 20160608
